FAERS Safety Report 23574124 (Version 2)
Quarter: 2024Q4

REPORT INFORMATION
  Report Type: Report from Study
  Country: CA (occurrence: CA)
  Receive Date: 20240228
  Receipt Date: 20241023
  Transmission Date: 20250115
  Serious: Yes (Other)
  Sender: ABBVIE
  Company Number: None

PATIENT
  Age: 40 Year
  Sex: Female

DRUGS (12)
  1. ESCITALOPRAM [Suspect]
     Active Substance: ESCITALOPRAM OXALATE
     Indication: Depression
     Dosage: LAST ADMIN DATE 2023
     Route: 065
     Dates: start: 202307
  2. ESCITALOPRAM [Suspect]
     Active Substance: ESCITALOPRAM OXALATE
     Indication: Depression
     Route: 048
     Dates: start: 20231101
  3. ESCITALOPRAM [Suspect]
     Active Substance: ESCITALOPRAM OXALATE
     Indication: Depression
     Dosage: LAST ADMIN DATE 2023
     Route: 048
     Dates: start: 20230801
  4. CONTRAVE [Interacting]
     Active Substance: BUPROPION HYDROCHLORIDE\NALTREXONE HYDROCHLORIDE
     Indication: Weight control
     Route: 048
     Dates: start: 2023, end: 2023
  5. CONTRAVE [Interacting]
     Active Substance: BUPROPION HYDROCHLORIDE\NALTREXONE HYDROCHLORIDE
     Indication: Weight control
     Dosage: UP TO 4 TABLETS DAILY
     Route: 048
     Dates: start: 202210
  6. CONTRAVE [Interacting]
     Active Substance: BUPROPION HYDROCHLORIDE\NALTREXONE HYDROCHLORIDE
     Indication: Weight control
     Route: 048
     Dates: start: 202402
  7. CONTRAVE [Interacting]
     Active Substance: BUPROPION HYDROCHLORIDE\NALTREXONE HYDROCHLORIDE
     Indication: Weight control
     Dosage: LAST ADMIN DATE 2023
     Route: 048
     Dates: start: 20230401
  8. CONTRAVE [Interacting]
     Active Substance: BUPROPION HYDROCHLORIDE\NALTREXONE HYDROCHLORIDE
     Indication: Weight control
     Route: 048
     Dates: start: 202303
  9. TYLENOL [Concomitant]
     Active Substance: ACETAMINOPHEN
     Indication: Migraine
     Dosage: TIME INTERVAL: AS NECESSARY
     Route: 048
  10. EPHEDRINE [Concomitant]
     Active Substance: EPHEDRINE
     Indication: Migraine
     Dosage: TIME INTERVAL: AS NECESSARY
     Route: 048
  11. IRON [Suspect]
     Active Substance: IRON
     Indication: Iron deficiency
     Route: 065
  12. IRON [Suspect]
     Active Substance: IRON
     Indication: Iron deficiency
     Route: 065

REACTIONS (13)
  - Autism spectrum disorder [Unknown]
  - Intentional product use issue [Recovered/Resolved]
  - Labelled drug-drug interaction issue [Unknown]
  - Tremor [Recovered/Resolved]
  - Diarrhoea [Recovered/Resolved]
  - Underdose [Unknown]
  - Hypoglycaemia [Recovered/Resolved]
  - Stress [Not Recovered/Not Resolved]
  - Taste disorder [Not Recovered/Not Resolved]
  - Headache [Not Recovered/Not Resolved]
  - Blood iron decreased [Not Recovered/Not Resolved]
  - Abdominal pain [Recovered/Resolved]
  - Wrong technique in product usage process [Unknown]

NARRATIVE: CASE EVENT DATE: 20221001
